FAERS Safety Report 13700977 (Version 1)
Quarter: 2017Q2

REPORT INFORMATION
  Report Type: Spontaneous
  Country: US (occurrence: US)
  Receive Date: 20170628
  Receipt Date: 20170628
  Transmission Date: 20170830
  Serious: Yes (Other)
  Sender: FDA-Public Use
  Company Number: None

PATIENT
  Age: 62 Year
  Sex: Female
  Weight: 96.2 kg

DRUGS (17)
  1. VERAPAMIL [Concomitant]
     Active Substance: VERAPAMIL HYDROCHLORIDE
  2. MAGNESIUM HYDROXIDE. [Concomitant]
     Active Substance: MAGNESIUM HYDROXIDE
  3. APIXABAN [Suspect]
     Active Substance: APIXABAN
     Indication: DEEP VEIN THROMBOSIS
     Dosage: ?          OTHER DOSE:MG;?
     Route: 048
     Dates: start: 20170626, end: 20170627
  4. HEPARIN [Suspect]
     Active Substance: HEPARIN SODIUM
  5. HYDROMORPHONE [Concomitant]
     Active Substance: HYDROMORPHONE
  6. LEVOTHYROXINE. [Concomitant]
     Active Substance: LEVOTHYROXINE
  7. DOCUSATE [Concomitant]
     Active Substance: DOCUSATE
  8. PAROXETINE ER 12.5MG TAB [Concomitant]
     Active Substance: PAROXETINE
  9. ACETAMINOPHEN. [Concomitant]
     Active Substance: ACETAMINOPHEN
  10. BISACODYL SUPP. [Concomitant]
  11. XARELTO [Suspect]
     Active Substance: RIVAROXABAN
     Indication: DEEP VEIN THROMBOSIS
     Dosage: ?          OTHER DOSE:MG;?
     Route: 048
     Dates: start: 20170624, end: 20170625
  12. OXYCODONE [Concomitant]
     Active Substance: OXYCODONE
  13. CLONAZEPAM. [Concomitant]
     Active Substance: CLONAZEPAM
  14. VALSARTAN. [Concomitant]
     Active Substance: VALSARTAN
  15. ATENOLOL. [Concomitant]
     Active Substance: ATENOLOL
  16. PANTOPRAZOLE [Concomitant]
     Active Substance: PANTOPRAZOLE
  17. ATORVASTATIN [Concomitant]
     Active Substance: ATORVASTATIN

REACTIONS (2)
  - Urinary retention [None]
  - Deep vein thrombosis [None]

NARRATIVE: CASE EVENT DATE: 20170625
